FAERS Safety Report 7211270-9 (Version None)
Quarter: 2011Q1

REPORT INFORMATION
  Report Type: 
  Country: None (occurrence: None)
  Receive Date: 20110105
  Receipt Date: 20101228
  Transmission Date: 20110831
  Serious: Yes (Death, Other)
  Sender: FDA-Public Use
  Company Number: US-GENZYME-FLUD-1000577

PATIENT

DRUGS (12)
  1. URSODIOL [Concomitant]
     Indication: PROPHYLAXIS
  2. TRIMETHOPRIM + SULFAMETHOXAZOLE [Concomitant]
     Indication: INFECTION PROPHYLAXIS
  3. FLUCONAZOLE [Concomitant]
     Indication: INFECTION PROPHYLAXIS
  4. GANCICLOVIR [Concomitant]
     Indication: INFECTION PROPHYLAXIS
  5. METHOTREXATE [Concomitant]
     Indication: IMMUNOSUPPRESSANT DRUG THERAPY
  6. MYCOPHENOLATE MOFETIL [Concomitant]
     Indication: IMMUNOSUPPRESSANT DRUG THERAPY
  7. DAPSONE [Concomitant]
     Indication: INFECTION PROPHYLAXIS
  8. FLUDARA [Suspect]
     Indication: PREMEDICATION
     Dosage: UNK
     Route: 065
  9. CYCLOPHOSPHAMIDE [Suspect]
     Indication: PREMEDICATION
  10. BUSULFAN [Suspect]
     Indication: PREMEDICATION
  11. ACYCLOVIR [Concomitant]
     Indication: INFECTION PROPHYLAXIS
  12. ANTIBIOTICS [Concomitant]
     Indication: INFECTION PROPHYLAXIS

REACTIONS (8)
  - FUNGAL INFECTION [None]
  - BACTERAEMIA [None]
  - ACUTE GRAFT VERSUS HOST DISEASE [None]
  - CANDIDIASIS [None]
  - RENAL FAILURE ACUTE [None]
  - DEATH [None]
  - CYTOMEGALOVIRUS INFECTION [None]
  - RESPIRATORY FAILURE [None]
